FAERS Safety Report 8247958-0 (Version None)
Quarter: 2012Q1

REPORT INFORMATION
  Report Type: 
  Country: None (occurrence: None)
  Receive Date: 20120330
  Receipt Date: 20120324
  Transmission Date: 20120608
  Serious: Yes (Other)
  Sender: FDA-Public Use
  Company Number: SE-PFIZER INC-2011263302

PATIENT
  Sex: Female

DRUGS (1)
  1. DEPO-PROVERA [Suspect]
     Dosage: UNK

REACTIONS (10)
  - NAUSEA [None]
  - WEIGHT FLUCTUATION [None]
  - ABDOMINAL PAIN UPPER [None]
  - ABDOMINAL PAIN LOWER [None]
  - QUALITY OF LIFE DECREASED [None]
  - MIGRAINE [None]
  - DYSMENORRHOEA [None]
  - BEDRIDDEN [None]
  - MENORRHAGIA [None]
  - GENERAL PHYSICAL HEALTH DETERIORATION [None]
